FAERS Safety Report 21271207 (Version 2)
Quarter: 2022Q3

REPORT INFORMATION
  Report Type: Report from Study
  Country: DE (occurrence: DE)
  Receive Date: 20220830
  Receipt Date: 20220905
  Transmission Date: 20221027
  Serious: Yes (Hospitalization)
  Sender: FDA-Public Use
  Company Number: DE-NOVARTISPH-NVSC2022DE193670

PATIENT
  Sex: Female

DRUGS (7)
  1. UNSPECIFIED INGREDIENT [Suspect]
     Active Substance: UNSPECIFIED INGREDIENT
     Indication: Product used for unknown indication
     Dosage: UNK
     Route: 065
  2. IBUPROFEN [Suspect]
     Active Substance: IBUPROFEN
     Indication: Axial spondyloarthritis
     Dosage: 2400 MG
     Route: 065
     Dates: start: 20170912, end: 20170918
  3. IBUPROFEN [Suspect]
     Active Substance: IBUPROFEN
     Indication: Psoriatic arthropathy
  4. ETORICOXIB [Suspect]
     Active Substance: ETORICOXIB
     Indication: Axial spondyloarthritis
     Dosage: 90 MG
     Route: 065
     Dates: start: 20170920, end: 20181018
  5. ETORICOXIB [Suspect]
     Active Substance: ETORICOXIB
     Indication: Psoriatic arthropathy
     Dosage: 90 MG
     Route: 065
     Dates: start: 20171001
  6. ACEMETACIN [Suspect]
     Active Substance: ACEMETACIN
     Indication: Axial spondyloarthritis
     Dosage: 180 MG
     Route: 065
     Dates: start: 20181018
  7. ACEMETACIN [Suspect]
     Active Substance: ACEMETACIN
     Indication: Psoriatic arthropathy

REACTIONS (2)
  - Back pain [Unknown]
  - Fatigue [Unknown]

NARRATIVE: CASE EVENT DATE: 20181018
